FAERS Safety Report 5098502-0 (Version None)
Quarter: 2006Q3

REPORT INFORMATION
  Report Type: 
  Country: None (occurrence: None)
  Receive Date: 20060906
  Receipt Date: 20060206
  Transmission Date: 20061208
  Serious: No
  Sender: FDA-Public Use
  Company Number: US-GLAXOSMITHKLINE-A0592483A

PATIENT
  Age: 43 Year
  Sex: Female

DRUGS (4)
  1. REQUIP [Suspect]
     Indication: RESTLESS LEGS SYNDROME
     Dosage: .25MG PER DAY
     Route: 048
     Dates: start: 20060203
  2. DAYPRO [Concomitant]
  3. CYMBALTA [Concomitant]
  4. VITAMINS [Concomitant]

REACTIONS (2)
  - MYDRIASIS [None]
  - VISUAL DISTURBANCE [None]
